FAERS Safety Report 6709196-X (Version None)
Quarter: 2010Q2

REPORT INFORMATION
  Report Type: 
  Country: None (occurrence: None)
  Receive Date: 20100504
  Receipt Date: 20100422
  Transmission Date: 20101027
  Serious: Yes (Other)
  Sender: FDA-Public Use
  Company Number: DE-SANOFI-AVENTIS-2010SA015470

PATIENT
  Age: 78 Year
  Sex: Female
  Weight: 68.9 kg

DRUGS (10)
  1. MULTAQ [Suspect]
     Indication: ATRIAL FIBRILLATION
     Route: 048
     Dates: start: 20100224, end: 20100301
  2. DIGIMERCK [Concomitant]
     Route: 048
  3. DIGIMERCK [Concomitant]
     Indication: ATRIAL FIBRILLATION
     Route: 048
  4. CARMEN [Concomitant]
     Indication: HYPERTENSION
     Route: 048
  5. DILATREND [Concomitant]
     Indication: HYPERTENSION
     Route: 048
  6. DILATREND [Concomitant]
     Route: 048
  7. TORASEMIDE [Concomitant]
     Indication: HYPERTENSION
     Route: 048
  8. TORASEMIDE [Concomitant]
     Route: 048
  9. TORASEMIDE [Concomitant]
     Route: 048
  10. PENTAERYTHRITOL TETRANITRATE [Concomitant]
     Route: 048

REACTIONS (4)
  - BLOOD CREATININE INCREASED [None]
  - BLOOD UREA INCREASED [None]
  - GLOMERULAR FILTRATION RATE DECREASED [None]
  - RENAL FAILURE ACUTE [None]
